FAERS Safety Report 16962503 (Version 1)
Quarter: 2019Q4

REPORT INFORMATION
  Report Type: Spontaneous
  Country: GB (occurrence: GB)
  Receive Date: 20191025
  Receipt Date: 20191025
  Transmission Date: 20200122
  Serious: Yes (Disabling, Other)
  Sender: FDA-Public Use
  Company Number: GB-PFIZER INC-2019459853

PATIENT
  Sex: Female

DRUGS (1)
  1. CIPROFLOXACIN. [Suspect]
     Active Substance: CIPROFLOXACIN
     Indication: URINARY TRACT INFECTION
     Dosage: 1000 MG, 1X/DAY (FOR 5 DAYS)
     Dates: start: 20180721

REACTIONS (16)
  - Aphasia [Unknown]
  - Arthralgia [Not Recovered/Not Resolved]
  - Loss of consciousness [Unknown]
  - Food intolerance [Unknown]
  - Allergy to chemicals [Unknown]
  - Chest pain [Unknown]
  - Fatigue [Unknown]
  - Dysarthria [Unknown]
  - Dizziness [Unknown]
  - Post viral fatigue syndrome [Unknown]
  - Tremor [Unknown]
  - Musculoskeletal pain [Not Recovered/Not Resolved]
  - Lower respiratory tract infection [Unknown]
  - Dyspnoea [Unknown]
  - Depression [Unknown]
  - Pain in extremity [Unknown]

NARRATIVE: CASE EVENT DATE: 201807
